FAERS Safety Report 8208787-7 (Version None)
Quarter: 2012Q1

REPORT INFORMATION
  Report Type: 
  Country: None (occurrence: None)
  Receive Date: 20120314
  Receipt Date: 20120312
  Transmission Date: 20120608
  Serious: Yes (Other)
  Sender: FDA-Public Use
  Company Number: US-AMGEN-USASP2012015824

PATIENT
  Age: 73 Year
  Sex: Female

DRUGS (3)
  1. VITAMIN D [Concomitant]
  2. CALCIUM [Concomitant]
  3. PROLIA [Suspect]
     Indication: OSTEOPOROSIS POSTMENOPAUSAL
     Dates: start: 20120101

REACTIONS (7)
  - PHARYNGEAL OEDEMA [None]
  - LYMPHADENOPATHY [None]
  - POLLAKIURIA [None]
  - DRY MOUTH [None]
  - LYMPH NODE PAIN [None]
  - RASH [None]
  - PRURITUS [None]
